FAERS Safety Report 12713113 (Version 2)
Quarter: 2016Q3

REPORT INFORMATION
  Report Type: Report from Study
  Country: CA (occurrence: CA)
  Receive Date: 20160902
  Receipt Date: 20160923
  Transmission Date: 20161109
  Serious: Yes (Other)
  Sender: FDA-Public Use
  Company Number: CA-ABBVIE-16K-028-1714940-00

PATIENT
  Sex: Female

DRUGS (1)
  1. HUMIRA [Suspect]
     Active Substance: ADALIMUMAB
     Indication: CROHN^S DISEASE
     Route: 058
     Dates: start: 20150612, end: 20160816

REACTIONS (6)
  - Intestinal fibrosis [Unknown]
  - Gastrointestinal inflammation [Recovered/Resolved]
  - Arthralgia [Not Recovered/Not Resolved]
  - Intestinal stenosis [Unknown]
  - Abscess intestinal [Recovering/Resolving]
  - Diarrhoea [Not Recovered/Not Resolved]
